FAERS Safety Report 10014308 (Version 1)
Quarter: 2014Q1

REPORT INFORMATION
  Report Type: Spontaneous
  Country: US (occurrence: US)
  Receive Date: 20140317
  Receipt Date: 20140317
  Transmission Date: 20141002
  Serious: No
  Sender: FDA-Public Use
  Company Number: US-BIOGENIDEC-2014BI021546

PATIENT
  Sex: Female
  Weight: 96 kg

DRUGS (10)
  1. TECFIDERA [Suspect]
     Indication: MULTIPLE SCLEROSIS
     Route: 048
     Dates: start: 20131019
  2. MAXALT [Concomitant]
  3. TYLENOL [Concomitant]
  4. IBUPROFEN [Concomitant]
  5. DEPO-PROVERA [Concomitant]
  6. IMITREX [Concomitant]
  7. VIDODIN [Concomitant]
  8. FLEXERIL [Concomitant]
  9. ACYCLOVIR [Concomitant]
  10. SERTRALINE [Concomitant]

REACTIONS (2)
  - Joint swelling [Not Recovered/Not Resolved]
  - Joint injury [Not Recovered/Not Resolved]
